FAERS Safety Report 23074838 (Version 1)
Quarter: 2023Q4

REPORT INFORMATION
  Report Type: Spontaneous
  Country: GB (occurrence: GB)
  Receive Date: 20231017
  Receipt Date: 20231017
  Transmission Date: 20240109
  Serious: Yes (Other)
  Sender: FDA-Public Use
  Company Number: None

PATIENT
  Age: 34 Year
  Sex: Female
  Weight: 70 kg

DRUGS (4)
  1. NEXPLANON [Suspect]
     Active Substance: ETONOGESTREL
     Indication: Palpitations
     Dosage: UNK
     Route: 003
     Dates: start: 20231011
  2. CITALOPRAM [Concomitant]
     Active Substance: CITALOPRAM HYDROBROMIDE
     Dosage: TAKE ONE TABLET EACH DAY
     Dates: start: 20230126
  3. CLOBETASOL PROPIONATE [Concomitant]
     Active Substance: CLOBETASOL PROPIONATE
     Dosage: APPLY THINLY ONCE OR TWICE A DAY
     Dates: start: 20230126
  4. LIDOCAINE [Concomitant]
     Active Substance: LIDOCAINE
     Dosage: USE AS DIRECTED
     Dates: start: 20230814, end: 20230815

REACTIONS (4)
  - Palpitations [Recovered/Resolved]
  - Menopausal symptoms [Recovered/Resolved]
  - Blood luteinising hormone abnormal [Unknown]
  - Blood follicle stimulating hormone abnormal [Unknown]

NARRATIVE: CASE EVENT DATE: 20231011
